FAERS Safety Report 16742286 (Version 2)
Quarter: 2019Q3

REPORT INFORMATION
  Report Type: Spontaneous
  Country: PT (occurrence: PT)
  Receive Date: 20190826
  Receipt Date: 20190930
  Transmission Date: 20191005
  Serious: Yes (Other)
  Sender: FDA-Public Use
  Company Number: PT-GLAXOSMITHKLINE-PT2019GSK153261

PATIENT
  Age: 48 Year
  Sex: Female

DRUGS (13)
  1. BUPROPION. [Suspect]
     Active Substance: BUPROPION
     Indication: WEIGHT CONTROL
     Dosage: UNK
     Route: 065
  2. ORLISTAT. [Interacting]
     Active Substance: ORLISTAT
     Indication: WEIGHT CONTROL
     Dosage: UNK
     Route: 065
  3. PHENOLPHTHALEIN [Interacting]
     Active Substance: PHENOLPHTHALEIN
     Indication: WEIGHT CONTROL
     Dosage: UNK
     Route: 065
  4. TOPIRAMATE. [Interacting]
     Active Substance: TOPIRAMATE
     Indication: WEIGHT CONTROL
     Dosage: UNK
     Route: 065
  5. SENNA ALEXANDRINA [Interacting]
     Active Substance: SENNA LEAF
     Indication: WEIGHT CONTROL
     Dosage: UNK
     Route: 065
  6. CASCARA SAGRADA [Interacting]
     Active Substance: FRANGULA PURSHIANA BARK
     Indication: WEIGHT CONTROL
     Dosage: UNK
     Route: 065
  7. ETHINYLESTRADIOL AND GESTODENE [Interacting]
     Active Substance: ETHINYL ESTRADIOL\GESTODENE
     Indication: ORAL CONTRACEPTION
     Dosage: UNK (0.030 MG / 0.075 MG) (RE-INTRODUCED 5 MONTHS BEFORE)
     Route: 048
  8. ETHINYLESTRADIOL AND GESTODENE [Interacting]
     Active Substance: ETHINYL ESTRADIOL\GESTODENE
     Dosage: UNK (0.030 MG / 0.075 MG) (RE-INTRODUCED 5 MONTHS BEFORE)
     Route: 048
  9. CENTELLA ASIATICA [Interacting]
     Active Substance: CENTELLA ASIATICA
     Indication: WEIGHT CONTROL
     Dosage: UNK
     Route: 065
  10. METFORMIN [Interacting]
     Active Substance: METFORMIN HYDROCHLORIDE
     Indication: WEIGHT CONTROL
     Dosage: UNK
     Route: 065
  11. CHROMIUM PICOLINATE [Interacting]
     Active Substance: CHROMIUM PICOLINATE
     Indication: WEIGHT CONTROL
     Dosage: UNK
     Route: 065
  12. CHLORDIAZEPOXIDE. [Interacting]
     Active Substance: CHLORDIAZEPOXIDE
     Indication: WEIGHT CONTROL
     Dosage: UNK
     Route: 065
  13. FUROSEMIDE. [Interacting]
     Active Substance: FUROSEMIDE
     Indication: WEIGHT CONTROL
     Dosage: UNK
     Route: 065

REACTIONS (2)
  - Cerebral venous thrombosis [Unknown]
  - Drug interaction [Unknown]
